FAERS Safety Report 21640490 (Version 1)
Quarter: 2022Q4

REPORT INFORMATION
  Report Type: Spontaneous
  Country: US (occurrence: US)
  Receive Date: 20221124
  Receipt Date: 20221124
  Transmission Date: 20230112
  Serious: No
  Sender: FDA-Public Use
  Company Number: US-BEH-2022152068

PATIENT
  Sex: Female

DRUGS (10)
  1. HIZENTRA [Suspect]
     Active Substance: HUMAN IMMUNOGLOBULIN G
     Indication: Food allergy
     Dosage: 20 GRAM, QOW
     Route: 058
     Dates: start: 2022
  2. AMITRIPTYLINE [Concomitant]
     Active Substance: AMITRIPTYLINE
  3. ATENOLOL [Concomitant]
     Active Substance: ATENOLOL
  4. ESTRADIOL [Concomitant]
     Active Substance: ESTRADIOL
  5. LYRICA [Concomitant]
     Active Substance: PREGABALIN
  6. MIRABEGRON [Concomitant]
     Active Substance: MIRABEGRON
  7. PREMARIN [Concomitant]
     Active Substance: ESTROGENS, CONJUGATED
  8. SINGULAIR [Concomitant]
     Active Substance: MONTELUKAST SODIUM
  9. SYNTHROID [Concomitant]
     Active Substance: LEVOTHYROXINE SODIUM
  10. ZOLOFT [Concomitant]
     Active Substance: SERTRALINE HYDROCHLORIDE

REACTIONS (3)
  - Nasal congestion [Recovered/Resolved]
  - No adverse event [Unknown]
  - Off label use [Unknown]
